FAERS Safety Report 14803229 (Version 1)
Quarter: 2018Q2

REPORT INFORMATION
  Report Type: Spontaneous
  Country: US (occurrence: US)
  Receive Date: 20180425
  Receipt Date: 20180425
  Transmission Date: 20180711
  Serious: Yes (Death)
  Sender: FDA-Public Use
  Company Number: US-BIOGEN-2018BI00561419

PATIENT
  Age: 4 Year
  Sex: Male

DRUGS (1)
  1. TYSABRI [Suspect]
     Active Substance: NATALIZUMAB
     Indication: CD4 LYMPHOCYTES ABNORMAL
     Route: 065

REACTIONS (4)
  - Respiratory failure [Fatal]
  - Central nervous system lesion [Unknown]
  - Drug administered to patient of inappropriate age [Unknown]
  - Intentional product use issue [Unknown]
